FAERS Safety Report 15620483 (Version 5)
Quarter: 2024Q1

REPORT INFORMATION
  Report Type: Spontaneous
  Country: UG (occurrence: UG)
  Receive Date: 20181115
  Receipt Date: 20240103
  Transmission Date: 20240410
  Serious: Yes (Congenital Anomaly, Other)
  Sender: FDA-Public Use
  Company Number: UG-AUROBINDO-AUR-APL-2018-054477

PATIENT
  Sex: Male
  Weight: 2.9 kg

DRUGS (5)
  1. EFAVIRENZ [Suspect]
     Active Substance: EFAVIRENZ
     Indication: HIV infection
     Dosage: 600 MILLIGRAM, DAILY
     Route: 064
     Dates: start: 20180213
  2. TENOFOVIR DISOPROXIL FUMARATE [Suspect]
     Active Substance: TENOFOVIR DISOPROXIL FUMARATE
     Indication: HIV infection
     Dosage: 300 MILLIGRAM, DAILY
     Route: 064
     Dates: start: 20180213
  3. LAMIVUDINE [Suspect]
     Active Substance: LAMIVUDINE
     Indication: HIV infection
     Dosage: 300 MILLIGRAM, DAILY
     Route: 064
     Dates: start: 20180213
  4. SULFAMETHOXAZOLE\TRIMETHOPRIM [Suspect]
     Active Substance: SULFAMETHOXAZOLE\TRIMETHOPRIM
     Indication: HIV infection
     Route: 064
  5. PROGESTERONE [Concomitant]
     Active Substance: PROGESTERONE
     Indication: Product used for unknown indication
     Dosage: UNK
     Route: 065

REACTIONS (2)
  - Congenital umbilical hernia [Unknown]
  - Foetal exposure during pregnancy [Recovered/Resolved]

NARRATIVE: CASE EVENT DATE: 20180101
